FAERS Safety Report 8564916-7 (Version None)
Quarter: 2012Q3

REPORT INFORMATION
  Report Type: 
  Country: None (occurrence: None)
  Receive Date: 20120803
  Receipt Date: 20120801
  Transmission Date: 20120928
  Serious: No
  Sender: FDA-Public Use
  Company Number: US-PFIZER INC-2012187236

PATIENT
  Sex: Female
  Weight: 86.168 kg

DRUGS (3)
  1. LYRICA [Suspect]
     Dosage: 150 MG, 2X/DAY
     Route: 048
     Dates: start: 20120725
  2. MICARDIS [Concomitant]
     Indication: HYPERTENSION
     Dosage: 40 MG
  3. LYRICA [Suspect]
     Indication: NECK PAIN
     Dosage: 75 MG, 2X/DAY
     Route: 048
     Dates: start: 20120718, end: 20120724

REACTIONS (2)
  - ANORGASMIA [None]
  - DRUG INEFFECTIVE [None]
